FAERS Safety Report 5211481-8 (Version None)
Quarter: 2006Q4

REPORT INFORMATION
  Report Type: 
  Country: None (occurrence: None)
  Receive Date: 20061115
  Receipt Date: 20060725
  Transmission Date: 20070319
  Serious: No
  Sender: FDA-Public Use
  Company Number: 200614903BWH

PATIENT
  Sex: Male

DRUGS (4)
  1. NEXAVAR [Suspect]
     Indication: RENAL NEOPLASM
     Dosage: 400 MG, BID, ORAL
     Route: 048
     Dates: start: 20060510, end: 20060730
  2. LIPITOR [Concomitant]
  3. COUMADIN [Concomitant]
  4. AMBIEN [Concomitant]

REACTIONS (3)
  - GAIT DISTURBANCE [None]
  - MOUTH ULCERATION [None]
  - PALMAR-PLANTAR ERYTHRODYSAESTHESIA SYNDROME [None]
